FAERS Safety Report 25777497 (Version 1)
Quarter: 2025Q3

REPORT INFORMATION
  Report Type: Spontaneous
  Country: US (occurrence: US)
  Receive Date: 20250909
  Receipt Date: 20250909
  Transmission Date: 20251021
  Serious: No
  Sender: COSETTE PHARMACEUTICALS INC
  Company Number: US-COSETTE-CP2025US000845

PATIENT
  Age: 10 Year
  Sex: Female

DRUGS (2)
  1. HYDROCORTISONE AND ACETIC ACID [Suspect]
     Active Substance: ACETIC ACID\HYDROCORTISONE
     Indication: Staphylococcal infection
     Route: 050
     Dates: start: 202508
  2. HYDROCORTISONE AND ACETIC ACID [Suspect]
     Active Substance: ACETIC ACID\HYDROCORTISONE
     Indication: Bacterial infection

REACTIONS (1)
  - Oropharyngeal pain [Unknown]

NARRATIVE: CASE EVENT DATE: 20250801
